FAERS Safety Report 5894119-6 (Version None)
Quarter: 2008Q3

REPORT INFORMATION
  Report Type: 
  Country: None (occurrence: None)
  Receive Date: 20080923
  Receipt Date: 20080111
  Transmission Date: 20090109
  Serious: No
  Sender: FDA-Public Use
  Company Number: US-ASTRAZENECA-2008UW00911

PATIENT
  Age: 53 Year
  Sex: Female
  Weight: 86.2 kg

DRUGS (3)
  1. SEROQUEL [Suspect]
     Indication: MANIA
     Route: 048
     Dates: start: 20080102
  2. SEROQUEL [Suspect]
     Indication: SLEEP DISORDER
     Route: 048
     Dates: start: 20080102
  3. LAMICTAL [Concomitant]

REACTIONS (2)
  - HALLUCINATION, VISUAL [None]
  - VISUAL IMPAIRMENT [None]
